FAERS Safety Report 10161744 (Version 1)
Quarter: 2014Q2

REPORT INFORMATION
  Report Type: Spontaneous
  Country: US (occurrence: None)
  Receive Date: 20140508
  Receipt Date: 20140508
  Transmission Date: 20141212
  Serious: Yes (Disabling)
  Sender: FDA-Public Use
  Company Number: None

PATIENT
  Age: 38 Year
  Sex: Female
  Weight: 73.94 kg

DRUGS (1)
  1. PREDNISONE [Suspect]
     Indication: COLITIS ULCERATIVE
     Route: 048
     Dates: start: 20110507, end: 20131012

REACTIONS (1)
  - Osteonecrosis [None]
